FAERS Safety Report 18703900 (Version 2)
Quarter: 2021Q1

REPORT INFORMATION
  Report Type: Spontaneous
  Country: FR (occurrence: FR)
  Receive Date: 20210106
  Receipt Date: 20210111
  Transmission Date: 20210419
  Serious: Yes (Hospitalization)
  Sender: FDA-Public Use
  Company Number: FR-SA-2020SA375581

PATIENT
  Age: 17 Year
  Sex: Female
  Weight: 80 kg

DRUGS (7)
  1. DESLORATADINE. [Suspect]
     Active Substance: DESLORATADINE
     Indication: SUICIDE ATTEMPT
     Dosage: 1 DF, TOTAL
     Route: 048
     Dates: start: 20200506, end: 20200506
  2. TAMSULOSIN HYDROCHLORIDE. [Suspect]
     Active Substance: TAMSULOSIN HYDROCHLORIDE
     Indication: SUICIDE ATTEMPT
     Dosage: 1 DF, TOTAL
     Route: 048
     Dates: start: 20200506, end: 20200506
  3. OROKEN [Suspect]
     Active Substance: CEFIXIME
     Indication: SUICIDE ATTEMPT
     Dosage: 1 DF, TOTAL
     Route: 048
     Dates: start: 20200506, end: 20200506
  4. DOLIPRANE [Suspect]
     Active Substance: ACETAMINOPHEN
     Indication: SUICIDE ATTEMPT
     Dosage: 1 DF, TOTAL
     Route: 048
     Dates: start: 20200506, end: 20200506
  5. PROZAC [Concomitant]
     Active Substance: FLUOXETINE HYDROCHLORIDE
  6. PROPRANOLOL HYDROCHLORIDE. [Suspect]
     Active Substance: PROPRANOLOL HYDROCHLORIDE
     Indication: SUICIDE ATTEMPT
     Dosage: 1 DF, TOTAL
     Route: 048
     Dates: start: 20200506, end: 20200506
  7. DICLOFENAC SODIUM. [Suspect]
     Active Substance: DICLOFENAC SODIUM
     Indication: SUICIDE ATTEMPT
     Dosage: 1 DF, TOTAL
     Route: 048
     Dates: start: 20200506, end: 20200506

REACTIONS (8)
  - Hypotension [Recovered/Resolved]
  - Somnolence [Recovered/Resolved]
  - Vomiting [Recovered/Resolved]
  - Toxicity to various agents [Recovered/Resolved]
  - Drug level increased [Recovered/Resolved]
  - Product use in unapproved indication [Unknown]
  - Dizziness [Recovered/Resolved]
  - Disorientation [Recovered/Resolved]

NARRATIVE: CASE EVENT DATE: 20200506
